FAERS Safety Report 12707611 (Version 1)
Quarter: 2016Q3

REPORT INFORMATION
  Report Type: Spontaneous
  Country: IT (occurrence: IT)
  Receive Date: 20160901
  Receipt Date: 20160901
  Transmission Date: 20161109
  Serious: Yes (Hospitalization)
  Sender: FDA-Public Use
  Company Number: IT-SA-2016SA161331

PATIENT
  Age: 72 Year
  Sex: Female

DRUGS (12)
  1. METFORMIN [Concomitant]
     Active Substance: METFORMIN HYDROCHLORIDE
     Route: 048
  2. EUTIROX [Concomitant]
     Active Substance: LEVOTHYROXINE SODIUM
     Indication: HYPOTHYROIDISM
  3. CARDIRENE [Concomitant]
     Active Substance: ASPIRIN DL-LYSINE
     Dosage: 75 MG POWDER FOR ORAL SOLUTION
  4. DIBASE [Concomitant]
     Active Substance: CHOLECALCIFEROL
     Route: 048
  5. CARVIPRESS [Concomitant]
     Active Substance: CARVEDILOL
     Dosage: DOSE:1 UNIT(S)
     Route: 048
  6. CARDURA [Concomitant]
     Active Substance: DOXAZOSIN MESYLATE
     Dosage: DOSE:1 UNIT(S)
  7. ZETIA [Concomitant]
     Active Substance: EZETIMIBE
     Indication: DYSLIPIDAEMIA
     Dosage: DOSE:1 UNIT(S)
  8. GALVUS [Concomitant]
     Active Substance: VILDAGLIPTIN
     Dosage: DOSE:1 UNIT(S)
     Route: 048
  9. DIAMICRON [Concomitant]
     Active Substance: GLICLAZIDE
     Dosage: DOSE:2 UNIT(S)
  10. COAPROVEL [Suspect]
     Active Substance: HYDROCHLOROTHIAZIDE\IRBESARTAN
     Indication: HYPERTENSION
     Route: 048
     Dates: start: 20160526, end: 20160611
  11. LERCAPREL [Concomitant]
     Active Substance: ENALAPRIL MALEATE\LERCANIDIPINE HYDROCHLORIDE
     Dosage: DOSE:1 UNIT(S)
  12. DEURSIL [Concomitant]
     Active Substance: URSODIOL
     Dosage: 450 MG PROLONGED RELEASE HARD CAPSULES DOSE:1 UNIT(S)

REACTIONS (2)
  - Hyponatraemia [Recovered/Resolved]
  - Confusional state [Recovered/Resolved]

NARRATIVE: CASE EVENT DATE: 20160611
